FAERS Safety Report 8944560 (Version 2)
Quarter: 2012Q4

REPORT INFORMATION
  Report Type: 
  Country: US (occurrence: US)
  Receive Date: 20121204
  Receipt Date: 20121214
  Transmission Date: 20130627
  Serious: Yes (Hospitalization)
  Sender: FDA-Public Use
  Company Number: US-AMGEN-USASP2012060283

PATIENT
  Age: 65 Year
  Sex: Male

DRUGS (2)
  1. ENBREL [Suspect]
     Indication: RHEUMATOID ARTHRITIS
     Dosage: 50 mg, qwk
     Dates: start: 20120831, end: 201210
  2. METHOTREXATE [Concomitant]
     Dosage: UNK

REACTIONS (2)
  - Arthralgia [Recovered/Resolved]
  - Back pain [Not Recovered/Not Resolved]
